FAERS Safety Report 8064522-7 (Version None)
Quarter: 2012Q1

REPORT INFORMATION
  Report Type: 
  Country: None (occurrence: None)
  Receive Date: 20120123
  Receipt Date: 20120118
  Transmission Date: 20120608
  Serious: Yes (Other)
  Sender: FDA-Public Use
  Company Number: US-PFIZER INC-2012014959

PATIENT
  Sex: Male
  Weight: 145.13 kg

DRUGS (2)
  1. LYRICA [Suspect]
     Indication: SYSTEMIC MASTOCYTOSIS
     Dosage: 75 MG, 1X/DAY
     Route: 048
     Dates: start: 20070101
  2. LYRICA [Suspect]
     Indication: PAIN

REACTIONS (4)
  - AUTOIMMUNE THYROIDITIS [None]
  - GALLBLADDER DISORDER [None]
  - TACHYCARDIA [None]
  - DIABETES MELLITUS [None]
